FAERS Safety Report 11026604 (Version 1)
Quarter: 2015Q2

REPORT INFORMATION
  Report Type: Spontaneous
  Country: US (occurrence: US)
  Receive Date: 20150414
  Receipt Date: 20150414
  Transmission Date: 20150821
  Serious: No
  Sender: FDA-Public Use
  Company Number: US-GALDERMA-US15001398

PATIENT
  Sex: Female

DRUGS (2)
  1. ACANYA GEL (BENZOYL PEROXIDE AND CLINDAMYCIN PHOSPHATE) [Concomitant]
     Route: 061
  2. SOOLANTRA [Suspect]
     Active Substance: IVERMECTIN
     Indication: ROSACEA
     Route: 061

REACTIONS (3)
  - Blister [Unknown]
  - Dermatitis [Unknown]
  - Acne [Unknown]
